FAERS Safety Report 23707938 (Version 1)
Quarter: 2024Q2

REPORT INFORMATION
  Report Type: Spontaneous
  Country: US (occurrence: US)
  Receive Date: 20240404
  Receipt Date: 20240404
  Transmission Date: 20240716
  Serious: No
  Sender: FDA-Public Use
  Company Number: US-TEVA-VS-3173391

PATIENT
  Age: 54 Year
  Sex: Female

DRUGS (1)
  1. MUPIROCIN [Suspect]
     Active Substance: MUPIROCIN
     Indication: Staphylococcal infection
     Route: 065

REACTIONS (2)
  - Product prescribing error [Unknown]
  - Off label use [Unknown]
